FAERS Safety Report 6203541-X (Version None)
Quarter: 2009Q2

REPORT INFORMATION
  Report Type: 
  Country: None (occurrence: None)
  Receive Date: 20090527
  Receipt Date: 20090518
  Transmission Date: 20091009
  Serious: Yes (Hospitalization)
  Sender: FDA-Public Use
  Company Number: FR-ASTRAZENECA-2009CG00960

PATIENT
  Age: 23360 Day
  Sex: Female

DRUGS (7)
  1. DIPRIVAN [Suspect]
     Route: 042
     Dates: start: 20080821, end: 20080821
  2. BRISTOPEN [Suspect]
     Route: 042
     Dates: start: 20080821, end: 20080821
  3. DALACIN [Suspect]
     Route: 042
     Dates: start: 20080821, end: 20080821
  4. SUFENTA PRESERVATIVE FREE [Suspect]
     Route: 042
     Dates: start: 20080821, end: 20080821
  5. HYPNOVEL [Suspect]
     Route: 042
     Dates: start: 20080821, end: 20080821
  6. HEXOMEDINE [Suspect]
     Route: 061
     Dates: start: 20080821, end: 20080821
  7. GENTALLINE [Concomitant]
     Route: 042
     Dates: start: 20080821, end: 20080821

REACTIONS (2)
  - DERMATITIS CONTACT [None]
  - RASH MACULO-PAPULAR [None]
